FAERS Safety Report 8187450-5 (Version None)
Quarter: 2012Q1

REPORT INFORMATION
  Report Type: 
  Country: None (occurrence: None)
  Receive Date: 20120306
  Receipt Date: 20120229
  Transmission Date: 20120608
  Serious: Yes (Life-Threatening)
  Sender: FDA-Public Use
  Company Number: AU-ROCHE-1044555

PATIENT
  Sex: Female
  Weight: 56 kg

DRUGS (2)
  1. PEGASYS [Suspect]
     Indication: PRODUCT USED FOR UNKNOWN INDICATION
     Dates: start: 20111014, end: 20111220
  2. RIBAVIRIN [Suspect]
     Indication: PRODUCT USED FOR UNKNOWN INDICATION
     Dates: start: 20111014, end: 20111220

REACTIONS (5)
  - SUBARACHNOID HAEMORRHAGE [None]
  - INTRACRANIAL ANEURYSM [None]
  - PANCYTOPENIA [None]
  - NAUSEA [None]
  - HEADACHE [None]
